FAERS Safety Report 4367658-7 (Version None)
Quarter: 2004Q2

REPORT INFORMATION
  Report Type: 
  Country: None (occurrence: None)
  Receive Date: 20040601
  Receipt Date: 20040517
  Transmission Date: 20050107
  Serious: Yes (Hospitalization)
  Sender: FDA-Public Use
  Company Number: CA-GLAXOSMITHKLINE-A0511214A

PATIENT
  Age: 24 Year
  Sex: Male
  Weight: 68.2 kg

DRUGS (2)
  1. PAXIL [Suspect]
     Indication: OBSESSIVE-COMPULSIVE DISORDER
     Dosage: 40MG PER DAY
     Route: 048
     Dates: start: 20021001, end: 20040410
  2. NO CONCURRENT MEDICATIONS [Concomitant]

REACTIONS (5)
  - ANXIETY [None]
  - DERMATITIS EXFOLIATIVE [None]
  - PNEUMONIA [None]
  - PRURITUS [None]
  - RASH [None]
